FAERS Safety Report 21669953 (Version 1)
Quarter: 2022Q4

REPORT INFORMATION
  Report Type: Report from Study
  Country: US (occurrence: US)
  Receive Date: 20221201
  Receipt Date: 20221201
  Transmission Date: 20230112
  Serious: Yes (Other)
  Sender: FDA-Public Use
  Company Number: US-MYLANLABS-2022M1134731

PATIENT
  Sex: Female

DRUGS (1)
  1. CISPLATIN [Suspect]
     Active Substance: CISPLATIN
     Indication: Ovarian epithelial cancer
     Dosage: 75 MILLIGRAM/SQ. METER; RECEIVED OVER 60 MINUTES
     Route: 033

REACTIONS (1)
  - Chronic kidney disease [Unknown]
